FAERS Safety Report 5864591-6 (Version None)
Quarter: 2008Q3

REPORT INFORMATION
  Report Type: 
  Country: None (occurrence: None)
  Receive Date: 20080829
  Receipt Date: 20080716
  Transmission Date: 20090109
  Serious: No
  Sender: FDA-Public Use
  Company Number: US-ABBOTT-08P-163-0463494-00

PATIENT
  Sex: Male
  Weight: 70.37 kg

DRUGS (13)
  1. SIMCOR [Suspect]
     Indication: LOW DENSITY LIPOPROTEIN INCREASED
     Dosage: 500/20 MG DAILY IN THE EVENING
     Route: 048
     Dates: start: 20080522
  2. SIMCOR [Suspect]
     Indication: HIGH DENSITY LIPOPROTEIN DECREASED
     Dosage: 1000/40 MG IN THE EVENING
  3. SALVE [Concomitant]
     Indication: DRUG USE FOR UNKNOWN INDICATION
  4. METOPROLOL SUCCINATE [Concomitant]
     Indication: HYPERTENSION
     Dosage: DAILY
     Route: 046
     Dates: start: 19930101
  5. FELODIPINE [Concomitant]
     Indication: HYPERTENSION
     Dosage: DAILY
     Route: 048
     Dates: start: 19930101
  6. ALUPRINOLOL [Concomitant]
     Indication: GOUT
     Dosage: DAILY
  7. FOLIC ACID [Concomitant]
     Indication: BLOOD URIC ACID
     Dosage: 1 PILL DAILY
  8. ACETYLSALICYLIC ACID SRT [Concomitant]
     Indication: ANGIOPLASTY
     Dates: start: 19930101
  9. ACETYLSALICYLIC ACID SRT [Concomitant]
     Indication: CARDIAC DISORDER
  10. CLOPIDOGREL [Concomitant]
     Indication: CORONARY ARTERIAL STENT INSERTION
  11. CLOPIDOGREL [Concomitant]
     Indication: CARDIAC DISORDER
  12. CIRRUS [Concomitant]
     Indication: HYPERSENSITIVITY
  13. VITAMIN [Concomitant]
     Indication: VITAMIN SUPPLEMENTATION
     Dosage: 1 PILL DAILY
     Route: 048

REACTIONS (4)
  - BLOOD TRIGLYCERIDES INCREASED [None]
  - FLUSHING [None]
  - PRURITUS [None]
  - RASH GENERALISED [None]
